FAERS Safety Report 7467167-2 (Version None)
Quarter: 2011Q2

REPORT INFORMATION
  Report Type: 
  Country: None (occurrence: None)
  Receive Date: 20110509
  Receipt Date: 20110503
  Transmission Date: 20111010
  Serious: Yes (Other)
  Sender: FDA-Public Use
  Company Number: TW-WATSON-2011-05194

PATIENT
  Age: 56 Year
  Sex: Female

DRUGS (2)
  1. METOCLOPRAMIDE HYDROCHLORIDE [Suspect]
     Indication: NAUSEA
     Dosage: 20 MG, DAILY
     Route: 048
     Dates: start: 20031121
  2. METOCLOPRAMIDE HYDROCHLORIDE [Suspect]
     Indication: VOMITING

REACTIONS (3)
  - MOVEMENT DISORDER [None]
  - PARKINSONISM [None]
  - CENTRAL NERVOUS SYSTEM LESION [None]
